FAERS Safety Report 13805285 (Version 1)
Quarter: 2017Q3

REPORT INFORMATION
  Report Type: Spontaneous
  Country: GB (occurrence: GB)
  Receive Date: 20170728
  Receipt Date: 20170728
  Transmission Date: 20171127
  Serious: Yes (Other)
  Sender: FDA-Public Use
  Company Number: GB-TORRENT-00015453

PATIENT
  Age: 23 Year
  Sex: Male
  Weight: 124 kg

DRUGS (5)
  1. ZOPICLONE [Concomitant]
     Active Substance: ZOPICLONE
  2. VITAMIN D [Concomitant]
     Active Substance: CHOLECALCIFEROL
  3. ARIPIPRAZOLE. [Suspect]
     Active Substance: ARIPIPRAZOLE
  4. CYCLIZINE HYDROCHLORIDE [Concomitant]
     Active Substance: CYCLIZINE HYDROCHLORIDE
  5. VENLAFAXINE HYDROCHLORIDE. [Concomitant]
     Active Substance: VENLAFAXINE HYDROCHLORIDE

REACTIONS (2)
  - Impulse-control disorder [Not Recovered/Not Resolved]
  - Dependence [Not Recovered/Not Resolved]
